FAERS Safety Report 24766005 (Version 2)
Quarter: 2024Q4

REPORT INFORMATION
  Report Type: Spontaneous
  Country: JP (occurrence: JP)
  Receive Date: 20241223
  Receipt Date: 20241227
  Transmission Date: 20250114
  Serious: Yes (Death, Other)
  Sender: OTSUKA
  Company Number: JP-OTSUKA-2024_034176

PATIENT
  Age: 60 Year
  Sex: Female

DRUGS (27)
  1. TOLVAPTAN [Suspect]
     Active Substance: TOLVAPTAN
     Indication: Product used for unknown indication
     Dosage: 1 TABLET (7.5 MG)/TIME, ONCE A DAY (AFTER LUNCH)
     Route: 048
     Dates: start: 20241203, end: 20241209
  2. TOLVAPTAN [Suspect]
     Active Substance: TOLVAPTAN
     Dosage: 1 TABLET (7.5 MG)/TIME, ONCE A DAY (AFTER LUNCH)
     Route: 048
     Dates: start: 20241116, end: 20241119
  3. TOLVAPTAN [Suspect]
     Active Substance: TOLVAPTAN
     Dosage: 7.5 MG/TIME, TWO TIMES A DAY, MORNING/AFTER DINNER (FROM 19-NOV AFTER DINNER TO 22-NOV MORNING)
     Route: 048
     Dates: start: 20241119, end: 20241122
  4. TOLVAPTAN [Suspect]
     Active Substance: TOLVAPTAN
     Dosage: 7.5 MG/DAY, ONCE A DAY (AFTER LUNCH)
     Route: 048
     Dates: start: 20241122, end: 20241122
  5. TOLVAPTAN [Suspect]
     Active Substance: TOLVAPTAN
     Dosage: 1 TABLET (7.5 MG)/TIME, TWO TIMES A DAY, MORNING/AFTER LUNCH
     Route: 048
     Dates: start: 20241123, end: 20241202
  6. VONOPRAZAN FUMARATE [Concomitant]
     Active Substance: VONOPRAZAN FUMARATE
     Indication: Product used for unknown indication
     Dosage: 1 TABLET (20 MG)/TIME, ONCE A DAY, AFTER BREAKFAST, ONE PACKAGE
     Route: 065
     Dates: start: 20241112, end: 20241120
  7. VONOPRAZAN FUMARATE [Concomitant]
     Active Substance: VONOPRAZAN FUMARATE
     Dosage: 1 TABLET (20 MG)/TIME, ONCE A DAY, AFTER BREAKFAST
     Route: 065
     Dates: start: 20241114, end: 20241218
  8. SITAGLIPTIN PHOSPHATE [Concomitant]
     Active Substance: SITAGLIPTIN PHOSPHATE
     Indication: Product used for unknown indication
     Dosage: 1 TABLET (50 MG)/TIME, ONCE A DAY, AFTER BREAKFAST, ONE PACKAGE
     Route: 065
     Dates: start: 20241112, end: 20241120
  9. SITAGLIPTIN PHOSPHATE [Concomitant]
     Active Substance: SITAGLIPTIN PHOSPHATE
     Dosage: 1 TABLET (50 MG)/TIME, ONCE A DAY, AFTER BREAKFAST
     Route: 065
     Dates: start: 20241114, end: 20241120
  10. SULFAMETHOXAZOLE\TRIMETHOPRIM [Concomitant]
     Active Substance: SULFAMETHOXAZOLE\TRIMETHOPRIM
     Indication: Product used for unknown indication
     Dosage: 1 TABLET, ONCE A DAY, AFTER BREAKFAST, TAKE ORALLY ON MONDAYS AND FRIDAYS, ONE PACKAGE
     Route: 048
     Dates: start: 20241115, end: 20241118
  11. SULFAMETHOXAZOLE\TRIMETHOPRIM [Concomitant]
     Active Substance: SULFAMETHOXAZOLE\TRIMETHOPRIM
     Dosage: 1 TABLET, ONCE A DAY, AFTER BREAKFAST, TAKE ORALLY ON MONDAYS AND FRIDAYS
     Route: 048
     Dates: start: 20241115, end: 20241216
  12. PREDNISOLONE [Concomitant]
     Active Substance: PREDNISOLONE
     Indication: Product used for unknown indication
     Dosage: 1 TABLET (5 MG)/TIME, ONCE A DAY, AFTER BREAKFAST, ONE PACKAGE
     Route: 065
     Dates: start: 20241112, end: 20241120
  13. PREDNISOLONE [Concomitant]
     Active Substance: PREDNISOLONE
     Dosage: 1 TABLET (5 MG)/TIME, ONCE A DAY, AFTER BREAKFAST
     Route: 065
     Dates: start: 20241114, end: 20241218
  14. PREDNISOLONE [Concomitant]
     Active Substance: PREDNISOLONE
     Dosage: 6 TABLETS PER DAY, TWO TIMES A DAY (MORNING 4 TABLETS, AFTER LUNCH 2 TABLETS)
     Route: 065
     Dates: start: 20241119, end: 20241205
  15. PREDNISOLONE [Concomitant]
     Active Substance: PREDNISOLONE
     Dosage: 5 TABLETS PER DAY, TWO TIMES A DAY (MORNING 4 TABLETS, AFTER LUNCH 1 TABLET)
     Route: 065
     Dates: start: 20241206, end: 20241218
  16. AZOSEMIDE [Concomitant]
     Active Substance: AZOSEMIDE
     Indication: Product used for unknown indication
     Dosage: 0.5 TABLET/TIME, ONCE A DAY, AFTER BREAKFAST, ONE PACKAGE
     Route: 065
     Dates: start: 20241112, end: 20241114
  17. AZOSEMIDE [Concomitant]
     Active Substance: AZOSEMIDE
     Dosage: 0.5 TABLET/TIME, ONCE A DAY, AFTER BREAKFAST
     Route: 065
     Dates: start: 20241114, end: 20241218
  18. ATORVASTATIN CALCIUM TRIHYDRATE [Concomitant]
     Active Substance: ATORVASTATIN CALCIUM TRIHYDRATE
     Indication: Product used for unknown indication
     Dosage: 1 TABLET (5 MG)/TIME, ONCE A DAY (AFTER DINNER)
     Route: 065
     Dates: start: 20241114, end: 20241118
  19. ATORVASTATIN CALCIUM TRIHYDRATE [Concomitant]
     Active Substance: ATORVASTATIN CALCIUM TRIHYDRATE
     Indication: Product used for unknown indication
     Dosage: 1 TABLET (10 MG)/TIME, ONCE A DAY (AFTER DINNER)
     Route: 065
     Dates: start: 20241119, end: 20241218
  20. LINAGLIPTIN [Concomitant]
     Active Substance: LINAGLIPTIN
     Indication: Product used for unknown indication
     Dosage: 1 TABLET (5 MG)/TIME, ONCE A DAY (AFTER BREAKFAST)
     Route: 065
     Dates: start: 20241121, end: 20241218
  21. DEQUALINIUM CHLORIDE [Concomitant]
     Active Substance: DEQUALINIUM CHLORIDE
     Indication: Product used for unknown indication
     Dosage: 10 TABLETS/DAY, 6 TIMES A DAY, 1 PIECE EACH TIME
     Route: 065
     Dates: start: 20241115, end: 20241128
  22. LOSARTAN POTASSIUM [Concomitant]
     Active Substance: LOSARTAN POTASSIUM
     Indication: Product used for unknown indication
     Dosage: 0.5 TABLET/TIME, ONCE A DAY, AFTER BREAKFAST
     Route: 065
     Dates: start: 20241129, end: 20241215
  23. HEPARINOID [Concomitant]
     Indication: Product used for unknown indication
     Dosage: APPLY TO AFFECTED AREA 2 TO 3 TIMES A DAY
     Route: 062
     Dates: start: 20241121, end: 20241204
  24. HEPARINOID [Concomitant]
     Indication: Product used for unknown indication
     Dosage: APPLY TO AFFECTED AREA 2 TO 3 TIMES A DAY
     Route: 062
     Dates: start: 20241121, end: 20241204
  25. ELIQUIS [Concomitant]
     Active Substance: APIXABAN
     Indication: Product used for unknown indication
     Dosage: 5 MG/TIME, TWO TIMES A DAY (MORNING/AFTER DINNER), ONE PACKAGE
     Route: 065
     Dates: start: 20241112, end: 20241120
  26. VALACYCLOVIR HYDROCHLORIDE [Concomitant]
     Active Substance: VALACYCLOVIR HYDROCHLORIDE
     Indication: Product used for unknown indication
     Dosage: 1 TABLET/TIME (ONE PACKAGE), QD, AFTER BREAKFAST (TAKE ORALLY ON MONDAYS, WEDNESDAYS, FRIDAYS)
     Route: 048
     Dates: start: 20241113, end: 20241120
  27. MINODRONIC ACID [Concomitant]
     Active Substance: MINODRONIC ACID
     Indication: Product used for unknown indication
     Dosage: 1 TABLET, ONCE EVERY 4 WEEKS ONLY, AT WAKE UP
     Route: 065
     Dates: start: 20241206, end: 20241206

REACTIONS (2)
  - Hepatic failure [Fatal]
  - Abdominal pain upper [Unknown]

NARRATIVE: CASE EVENT DATE: 20241201
